FAERS Safety Report 5522119-4 (Version None)
Quarter: 2007Q4

REPORT INFORMATION
  Report Type: 
  Country: None (occurrence: None)
  Receive Date: 20071120
  Receipt Date: 20071113
  Transmission Date: 20080405
  Serious: Yes (Other)
  Sender: FDA-Public Use
  Company Number: US-MERCK-0710USA04343

PATIENT

DRUGS (1)
  1. VYTORIN [Suspect]
     Route: 048

REACTIONS (1)
  - RENAL FAILURE [None]
